FAERS Safety Report 7813129-2 (Version None)
Quarter: 2011Q4

REPORT INFORMATION
  Report Type: 
  Country: None (occurrence: None)
  Receive Date: 20111013
  Receipt Date: 20110930
  Transmission Date: 20120403
  Serious: Yes (Other)
  Sender: FDA-Public Use
  Company Number: BR-WATSON-2011-16146

PATIENT
  Age: 58 Year
  Sex: Female

DRUGS (3)
  1. CECOTEC [Concomitant]
     Indication: PRODUCT USED FOR UNKNOWN INDICATION
     Dosage: 0.4 MG, DAILY
     Route: 065
     Dates: start: 20110301
  2. CITALOPRAM HYDROBROMIDE [Suspect]
     Indication: DEPRESSION
     Dosage: 20 MG, DAILY
     Route: 065
     Dates: start: 20110829
  3. CLONAZEPAM [Concomitant]
     Indication: PRODUCT USED FOR UNKNOWN INDICATION
     Dosage: 2 MG, DAILY
     Route: 065
     Dates: start: 20010101

REACTIONS (7)
  - MICTURITION DISORDER [None]
  - FIBROMYALGIA [None]
  - DEPRESSION [None]
  - MALAISE [None]
  - PANIC DISORDER [None]
  - DIZZINESS [None]
  - PAIN IN EXTREMITY [None]
